FAERS Safety Report 4303502-1 (Version None)
Quarter: 2004Q1

REPORT INFORMATION
  Report Type: 
  Country: None (occurrence: None)
  Receive Date: 20040223
  Receipt Date: 20040217
  Transmission Date: 20041129
  Serious: Yes (Hospitalization)
  Sender: FDA-Public Use
  Company Number: STA-AE-04-MTX-068

PATIENT
  Age: 64 Year
  Sex: Male

DRUGS (8)
  1. RHEUMATREX [Suspect]
     Indication: RHEUMATOID ARTHRITIS
     Dosage: 6 MG 1X PER 1 WK, ORAL; 4 MG 1X PER 1 WK, ORAL
     Route: 048
     Dates: start: 20000125, end: 20000208
  2. RHEUMATREX [Suspect]
     Indication: RHEUMATOID ARTHRITIS
     Dosage: 6 MG 1X PER 1 WK, ORAL; 4 MG 1X PER 1 WK, ORAL
     Route: 048
     Dates: start: 20000209, end: 20010123
  3. RHEUMATREX [Suspect]
     Indication: RHEUMATOID ARTHRITIS
     Dosage: 6 MG 1X PER 1 WK, ORAL; 4 MG 1X PER 1 WK, ORAL
     Route: 048
     Dates: start: 20010124, end: 20030621
  4. RIMATIL (BUCILLAMINE) [Concomitant]
  5. PREDNISOLONE [Concomitant]
  6. VOLTAREN [Concomitant]
  7. SELBEX (TEPRENONE) [Concomitant]
  8. FOLIAMIN (FOLIC ACID) [Concomitant]

REACTIONS (5)
  - DIFFUSE LARGE B-CELL LYMPHOMA [None]
  - DYSPNOEA EXERTIONAL [None]
  - GASTRIC ULCER [None]
  - PLEURAL EFFUSION [None]
  - PRODUCTIVE COUGH [None]
